FAERS Safety Report 6041539-5 (Version None)
Quarter: 2009Q1

REPORT INFORMATION
  Report Type: 
  Country: None (occurrence: None)
  Receive Date: 20090116
  Receipt Date: 20090109
  Transmission Date: 20090719
  Serious: Yes (Hospitalization)
  Sender: FDA-Public Use
  Company Number: A0718443A

PATIENT
  Age: 56 Year
  Sex: Female

DRUGS (9)
  1. AVANDIA [Suspect]
     Dosage: 8MG PER DAY
     Route: 048
     Dates: start: 19990901, end: 20070125
  2. AVANDAMET [Suspect]
     Dates: start: 19990901, end: 20070125
  3. AVANDARYL [Suspect]
     Dates: start: 19990901, end: 20070125
  4. METFORMIN [Concomitant]
     Dates: start: 20030210, end: 20071101
  5. GLUCOPHAGE [Concomitant]
  6. MAXZIDE [Concomitant]
  7. ADVAIR DISKUS 100/50 [Concomitant]
  8. ZOLOFT [Concomitant]
  9. INSULIN [Concomitant]

REACTIONS (2)
  - CORONARY ARTERY DISEASE [None]
  - MYOCARDIAL INFARCTION [None]
